FAERS Safety Report 4693760-6 (Version None)
Quarter: 2005Q2

REPORT INFORMATION
  Report Type: 
  Country: None (occurrence: None)
  Receive Date: 20050616
  Receipt Date: 20050607
  Transmission Date: 20051028
  Serious: Yes (Other)
  Sender: FDA-Public Use
  Company Number: 2005-06-0404

PATIENT
  Sex: Female
  Weight: 57 kg

DRUGS (1)
  1. PEG-INTRON [Suspect]
     Indication: HEPATITIS C
     Dosage: 50 MCG SUBCUTANEOUS
     Route: 058

REACTIONS (9)
  - APPLICATION SITE FOLLICULITIS [None]
  - BLISTER [None]
  - LIVIDITY [None]
  - PURPURA [None]
  - RASH MACULO-PAPULAR [None]
  - RASH PAPULAR [None]
  - RASH SCALY [None]
  - RASH VESICULAR [None]
  - SKIN LESION [None]
